FAERS Safety Report 12681217 (Version 1)
Quarter: 2016Q3

REPORT INFORMATION
  Report Type: Spontaneous
  Country: US (occurrence: US)
  Receive Date: 20160824
  Receipt Date: 20160824
  Transmission Date: 20161109
  Serious: Yes (Other)
  Sender: FDA-Public Use
  Company Number: US-GE HEALTHCARE MEDICAL DIAGNOSTICS-OMPQ-PR-1608S-1489

PATIENT
  Age: 46 Year
  Sex: Male
  Weight: 87.17 kg

DRUGS (6)
  1. OMNIPAQUE [Suspect]
     Active Substance: IOHEXOL
     Indication: HEAD DISCOMFORT
     Route: 042
     Dates: start: 20160812, end: 20160812
  2. PEPCID [Concomitant]
     Active Substance: FAMOTIDINE
  3. XANAX [Concomitant]
     Active Substance: ALPRAZOLAM
  4. FLONASE [Concomitant]
     Active Substance: FLUTICASONE PROPIONATE
  5. OMNIPAQUE [Suspect]
     Active Substance: IOHEXOL
     Indication: DIAGNOSTIC PROCEDURE
  6. FLEXERIL [Concomitant]
     Active Substance: CYCLOBENZAPRINE HYDROCHLORIDE

REACTIONS (3)
  - Erythema [Not Recovered/Not Resolved]
  - Peripheral swelling [Not Recovered/Not Resolved]
  - Pruritus [Not Recovered/Not Resolved]

NARRATIVE: CASE EVENT DATE: 20160812
